FAERS Safety Report 23104358 (Version 1)
Quarter: 2023Q4

REPORT INFORMATION
  Report Type: Spontaneous
  Country: JO (occurrence: None)
  Receive Date: 20231024
  Receipt Date: 20231024
  Transmission Date: 20240110
  Serious: Yes (Hospitalization)
  Sender: FDA-Public Use
  Company Number: None

PATIENT
  Age: 51 Year
  Sex: Female
  Weight: 94 kg

DRUGS (3)
  1. LYRICA [Suspect]
     Active Substance: PREGABALIN
  2. PREDNISOLONE [Concomitant]
     Active Substance: PREDNISOLONE
  3. ETORICOXIB [Concomitant]
     Active Substance: ETORICOXIB

REACTIONS (1)
  - Dyspnoea [None]

NARRATIVE: CASE EVENT DATE: 20231018
